FAERS Safety Report 20316008 (Version 3)
Quarter: 2022Q1

REPORT INFORMATION
  Report Type: Other
  Country: US (occurrence: None)
  Receive Date: 20220110
  Receipt Date: 20220124
  Transmission Date: 20220423
  Serious: Yes (Death)
  Sender: FDA-Public Use
  Company Number: US-ROCHE-2995721

PATIENT
  Sex: Male

DRUGS (13)
  1. XELODA [Suspect]
     Active Substance: CAPECITABINE
     Indication: Colorectal cancer metastatic
     Dosage: TAKE 4 TABLETS BY MOUTH TWICE DAILY DAYS 1-14 EVERY 21 DAYS (2 WEEKS ON 1 WEEK OFF)-?TAKE WITH FOOD
     Route: 048
  2. XELODA [Suspect]
     Active Substance: CAPECITABINE
     Indication: Metastasis
  3. XELODA [Suspect]
     Active Substance: CAPECITABINE
     Indication: Rectal cancer
  4. XELODA [Suspect]
     Active Substance: CAPECITABINE
     Indication: Prostate cancer
  5. COMPAZINE [Concomitant]
     Active Substance: PROCHLORPERAZINE MALEATE
     Dosage: 1 P.O.Q 6 HOURS(QID) AS NEEDED FOR NAUSEA
     Route: 048
  6. ASPIRIN [Concomitant]
     Active Substance: ASPIRIN
     Dosage: 1 P.O.Q DAY
     Route: 048
     Dates: start: 20210112
  7. ATORVASTATIN [Concomitant]
     Active Substance: ATORVASTATIN
     Dosage: 1 P.O.Q DAY
     Route: 048
     Dates: start: 20210112
  8. CALCIUM CARBONATE\CHOLECALCIFEROL [Concomitant]
     Active Substance: CALCIUM CARBONATE\CHOLECALCIFEROL
     Dosage: BID
     Route: 048
     Dates: start: 20210112
  9. CARVEDILOL [Concomitant]
     Active Substance: CARVEDILOL
     Dosage: BID
     Dates: start: 20210112
  10. CYCLOBENZAPRINE [Concomitant]
     Active Substance: CYCLOBENZAPRINE
     Dosage: AS NEEDED
     Route: 048
     Dates: start: 20210112
  11. OXYCODONE [Concomitant]
     Active Substance: OXYCODONE
     Dosage: AS NEEDED
     Route: 048
     Dates: start: 20210112
  12. XTANDI [Concomitant]
     Active Substance: ENZALUTAMIDE
     Dosage: 4 CAPS DAILY 160 MG
     Route: 048
  13. ACETAMINOPHEN [Concomitant]
     Active Substance: ACETAMINOPHEN
     Dosage: AS NEEDED
     Route: 048
     Dates: start: 20210112

REACTIONS (1)
  - Death [Fatal]
